FAERS Safety Report 8300408-8 (Version None)
Quarter: 2012Q2

REPORT INFORMATION
  Report Type: 
  Country: None (occurrence: None)
  Receive Date: 20120420
  Receipt Date: 20120410
  Transmission Date: 20120825
  Serious: Yes (Hospitalization)
  Sender: FDA-Public Use
  Company Number: FR-JNJFOC-20120406795

PATIENT
  Sex: Female

DRUGS (7)
  1. IBUPROFEN [Suspect]
     Indication: PRODUCT USED FOR UNKNOWN INDICATION
     Route: 048
     Dates: start: 20120205, end: 20120206
  2. NEBIVOLOL [Concomitant]
     Route: 048
  3. CODEINE PHOSPHATE AND ACETAMINOPHEN [Concomitant]
     Route: 048
     Dates: start: 20120202
  4. XARELTO [Suspect]
     Indication: THROMBOSIS PROPHYLAXIS
     Route: 048
     Dates: start: 20120125, end: 20120206
  5. ACETAMINOPHEN [Concomitant]
     Route: 048
     Dates: start: 20120127
  6. ESIDRIX [Concomitant]
     Route: 048
  7. XARELTO [Suspect]
     Indication: KNEE ARTHROPLASTY
     Route: 048
     Dates: start: 20120125, end: 20120206

REACTIONS (2)
  - PAIN IN EXTREMITY [None]
  - HAEMATOMA [None]
